FAERS Safety Report 12782966 (Version 1)
Quarter: 2016Q3

REPORT INFORMATION
  Report Type: Spontaneous
  Country: US (occurrence: US)
  Receive Date: 20160927
  Receipt Date: 20160927
  Transmission Date: 20161109
  Serious: No
  Sender: FDA-Public Use
  Company Number: US-PFIZER INC-2016447907

PATIENT
  Age: 54 Year
  Sex: Female
  Weight: 86 kg

DRUGS (5)
  1. PREMARIN [Suspect]
     Active Substance: ESTROGENS, CONJUGATED
     Dosage: 0.5 G, UNK
     Route: 067
     Dates: start: 201606, end: 20160912
  2. SENOKOT [Concomitant]
     Active Substance: SENNOSIDES
     Indication: CONSTIPATION
     Dosage: 2 DF, 1X/DAY
     Route: 048
  3. COLACE [Concomitant]
     Active Substance: DOCUSATE SODIUM
     Indication: CONSTIPATION
     Dosage: 100 MG, 1X/DAY
     Route: 048
     Dates: start: 20160201
  4. GEODON [Suspect]
     Active Substance: ZIPRASIDONE HYDROCHLORIDE\ZIPRASIDONE MESYLATE
     Indication: PSYCHOTIC DISORDER
     Dosage: 20 MG, 1X/DAY
     Route: 048
     Dates: start: 2010
  5. PREMARIN [Suspect]
     Active Substance: ESTROGENS, CONJUGATED
     Indication: OVARIAN ATROPHY
     Dosage: 1 G, 2X/WEEK
     Route: 067
     Dates: start: 20160602

REACTIONS (7)
  - Vitamin B12 increased [Unknown]
  - Alopecia [Not Recovered/Not Resolved]
  - Drug administered at inappropriate site [Unknown]
  - Fatigue [Not Recovered/Not Resolved]
  - Trichorrhexis [Not Recovered/Not Resolved]
  - Weight increased [Unknown]
  - Intentional product use issue [Unknown]
